FAERS Safety Report 13662402 (Version 1)
Quarter: 2017Q2

REPORT INFORMATION
  Report Type: Other
  Country: IT (occurrence: IT)
  Receive Date: 20170617
  Receipt Date: 20170617
  Transmission Date: 20170830
  Serious: Yes (Other)
  Sender: FDA-Public Use
  Company Number: IT-MACLEODS PHARMACEUTICALS US LTD-MAC2017005186

PATIENT

DRUGS (3)
  1. EPOPROSTENOL. [Concomitant]
     Active Substance: EPOPROSTENOL
     Indication: PRODUCT USED FOR UNKNOWN INDICATION
     Dosage: UNK (CONTINUOS INFUSION)
     Route: 042
  2. SILDENAFIL FILM COATED TABLET [Suspect]
     Active Substance: SILDENAFIL
     Indication: PULMONARY ARTERIAL HYPERTENSION
     Dosage: UNK
     Route: 048
  3. HEPARIN [Concomitant]
     Active Substance: HEPARIN SODIUM
     Indication: PRODUCT USED FOR UNKNOWN INDICATION
     Dosage: UNK
     Route: 065

REACTIONS (7)
  - Maternal exposure timing unspecified [Recovered/Resolved]
  - Hypotension [Unknown]
  - Caesarean section [None]
  - Maternal exposure during pregnancy [None]
  - Flushing [Unknown]
  - Drug intolerance [None]
  - Premature delivery [None]
